FAERS Safety Report 6278013-7 (Version None)
Quarter: 2009Q4

REPORT INFORMATION
  Report Type: 
  Country: None (occurrence: None)
  Receive Date: 20090722
  Receipt Date: 20090709
  Transmission Date: 20100525
  Serious: Yes (Hospitalization, Other)
  Sender: FDA-Public Use
  Company Number: PHHO2009JP08115

PATIENT
  Sex: Male

DRUGS (12)
  1. RAD 666 RAD+TAB+PTR (EVEROLIMIS) [Suspect]
     Indication: RENAL TRANSPLANT
     Dosage: UNK
     Route: 048
     Dates: start: 20090619, end: 20090601
  2. RAD 666 RAD+TAB+PTR(EVEROLIMIS) [Suspect]
     Dosage: 0.5 MG
     Route: 048
     Dates: start: 20090601
  3. NEORAL [Suspect]
     Indication: RENAL TRANSPLANT
     Dosage: 400MG
     Route: 048
     Dates: start: 20090616, end: 20090601
  4. NEORAL [Suspect]
     Dosage: 200MG
     Route: 048
     Dates: start: 20090601
  5. SIMULECT [Suspect]
     Indication: RENAL TRANSPLANT
     Dosage: 20MG
     Dates: start: 20090622, end: 20090622
  6. LIPITOR [Suspect]
     Indication: HYPERLIPIDAEMIA
     Dosage: 10MG
     Route: 048
     Dates: start: 20090614, end: 20090620
  7. LANSOPRAZOLE [Suspect]
     Dosage: 15 MG
     Route: 048
     Dates: start: 20090614
  8. MEDROL [Suspect]
     Indication: RENAL TRANSPLANT
     Dosage: 20MG
     Route: 048
     Dates: start: 20090627
  9. PLETAL [Suspect]
     Dosage: 200MG
     Route: 048
     Dates: start: 20090620
  10. FLUMARIN [Suspect]
     Dosage: 1G
     Dates: start: 20090616, end: 20090621
  11. ALPROSTADIL ALFADEX [Suspect]
     Dosage: 20UG
     Dates: start: 20090619, end: 20090626
  12. HAEMODIALYSIS [Suspect]

REACTIONS (4)
  - NEPHROCALCINOSIS [None]
  - RENAL ARTERIOSCLEROSIS [None]
  - RENAL TUBULAR NECROSIS [None]
  - URINE OUTPUT DECREASED [None]
